FAERS Safety Report 4646028-8 (Version None)
Quarter: 2005Q2

REPORT INFORMATION
  Report Type: 
  Country: None (occurrence: None)
  Receive Date: 20050425
  Receipt Date: 20050412
  Transmission Date: 20051028
  Serious: Yes (Other)
  Sender: FDA-Public Use
  Company Number: 2005059072

PATIENT
  Age: 51 Year
  Sex: Female

DRUGS (1)
  1. BEXTRA [Suspect]
     Indication: POST PROCEDURAL PAIN
     Dosage: (40 MG), ORAL
     Route: 048
     Dates: start: 20040416

REACTIONS (4)
  - HYPERSENSITIVITY [None]
  - MASS [None]
  - PRURITUS [None]
  - SKIN LESION [None]
